FAERS Safety Report 13931590 (Version 1)
Quarter: 2017Q3

REPORT INFORMATION
  Report Type: Spontaneous
  Country: US (occurrence: US)
  Receive Date: 20170904
  Receipt Date: 20170904
  Transmission Date: 20171127
  Serious: No
  Sender: FDA-Public Use
  Company Number: US-009507513-1709USA000538

PATIENT
  Age: 69 Year
  Sex: Male

DRUGS (11)
  1. ASCORBIC ACID. [Concomitant]
     Active Substance: ASCORBIC ACID
  2. INTRON A [Suspect]
     Active Substance: INTERFERON ALFA-2B
     Indication: RENAL CANCER
     Dosage: 9MU, THREE TIMES A WEEK
     Route: 058
     Dates: start: 20170816, end: 201708
  3. CALCIUM (UNSPECIFIED) [Concomitant]
     Active Substance: CALCIUM
  4. OPDIVO [Concomitant]
     Active Substance: NIVOLUMAB
  5. CENTRUM ULTRA MENS [Concomitant]
  6. VERAPAMIL HYDROCHLORIDE. [Concomitant]
     Active Substance: VERAPAMIL HYDROCHLORIDE
  7. AMLODIPINE BESYLATE. [Concomitant]
     Active Substance: AMLODIPINE BESYLATE
  8. VYTORIN [Concomitant]
     Active Substance: EZETIMIBE\SIMVASTATIN
     Route: 048
  9. OXYCODONE HYDROCHLORIDE. [Concomitant]
     Active Substance: OXYCODONE HYDROCHLORIDE
  10. CLONIDINE HYDROCHLORIDE. [Concomitant]
     Active Substance: CLONIDINE HYDROCHLORIDE
  11. CENTRUM SILVER ULTRA MENS [Concomitant]

REACTIONS (3)
  - Hallucination [Unknown]
  - Rash [Unknown]
  - Headache [Unknown]

NARRATIVE: CASE EVENT DATE: 20170818
